FAERS Safety Report 12246986 (Version 1)
Quarter: 2016Q2

REPORT INFORMATION
  Report Type: Report from Study
  Country: RO (occurrence: RO)
  Receive Date: 20160407
  Receipt Date: 20160407
  Transmission Date: 20160815
  Serious: Yes (Hospitalization, Other)
  Sender: FDA-Public Use
  Company Number: RO-BRISTOL-MYERS SQUIBB COMPANY-BMS-2015-038163

PATIENT
  Age: 31 Year
  Sex: Male
  Weight: 64 kg

DRUGS (8)
  1. BLINDED PLACEBO [Suspect]
     Active Substance: INVESTIGATIONAL PRODUCT
     Dosage: 1 DF, QD
     Route: 048
     Dates: start: 20140723, end: 20150526
  2. TRUVADA [Concomitant]
     Active Substance: EMTRICITABINE\TENOFOVIR DISOPROXIL FUMARATE
     Indication: HIV INFECTION
     Dosage: 1 DF, QD
     Route: 048
     Dates: start: 20140404, end: 20150804
  3. BLINDED PLACEBO [Suspect]
     Active Substance: INVESTIGATIONAL PRODUCT
     Indication: HIV INFECTION
     Dosage: 1 DF, QD
     Route: 048
     Dates: start: 20140403, end: 20150530
  4. BLINDED EFAVIRENZ [Suspect]
     Active Substance: EFAVIRENZ
     Dosage: 1 DF, QD
     Route: 048
     Dates: start: 20140723, end: 20150526
  5. BLINDED EFAVIRENZ [Suspect]
     Active Substance: EFAVIRENZ
     Dosage: 1 DF, QD
     Route: 048
     Dates: start: 20150630, end: 20150804
  6. BLINDED PLACEBO [Suspect]
     Active Substance: INVESTIGATIONAL PRODUCT
     Dosage: 1 DF, QD
     Route: 048
     Dates: start: 20150630, end: 20150804
  7. BLINDED EFAVIRENZ [Suspect]
     Active Substance: EFAVIRENZ
     Indication: HIV INFECTION
     Dosage: 1 DF, QD
     Route: 048
     Dates: start: 20140403, end: 20150530
  8. TRUVADA [Concomitant]
     Active Substance: EMTRICITABINE\TENOFOVIR DISOPROXIL FUMARATE
     Dosage: 1 DF, QD
     Route: 048
     Dates: start: 20150630, end: 20150804

REACTIONS (2)
  - Hepatitis C [Recovered/Resolved]
  - Hepatitis toxic [Unknown]

NARRATIVE: CASE EVENT DATE: 20150527
